FAERS Safety Report 8116826-7 (Version None)
Quarter: 2012Q1

REPORT INFORMATION
  Report Type: 
  Country: None (occurrence: None)
  Receive Date: 20120206
  Receipt Date: 20120130
  Transmission Date: 20120608
  Serious: Yes (Other)
  Sender: FDA-Public Use
  Company Number: CHPA2012US000783

PATIENT
  Age: 76 Year
  Sex: Female

DRUGS (1)
  1. EXCEDRIN EXTRA STRENGTH TABLETS [Suspect]
     Indication: HEADACHE
     Dosage: 2 DF, UNK
     Route: 048
     Dates: start: 20111201, end: 20111201

REACTIONS (4)
  - VOMITING [None]
  - DRUG INEFFECTIVE [None]
  - INFECTION [None]
  - DIZZINESS [None]
